FAERS Safety Report 17671819 (Version 1)
Quarter: 2020Q2

REPORT INFORMATION
  Report Type: Spontaneous
  Country: JP (occurrence: JP)
  Receive Date: 20200415
  Receipt Date: 20200415
  Transmission Date: 20200713
  Serious: Yes (Hospitalization, Other)
  Sender: FDA-Public Use
  Company Number: JP-TAKEDA-2020TJP007554

PATIENT
  Age: 91 Year
  Sex: Female
  Weight: 39 kg

DRUGS (10)
  1. ALFAROL [Concomitant]
     Active Substance: ALFACALCIDOL
     Dosage: DOSAGE IS UNKNOWN
     Route: 065
     Dates: end: 20200111
  2. CANDESARTAN CILEXETIL. [Concomitant]
     Active Substance: CANDESARTAN CILEXETIL
     Dosage: DOSAGE IS UNKNOWN
     Route: 065
     Dates: end: 20200111
  3. SUMILU [Concomitant]
     Active Substance: FELBINAC
     Dosage: DOSAGE IS UNKNOWN
     Route: 065
     Dates: end: 20200111
  4. EQUA [Suspect]
     Active Substance: VILDAGLIPTIN
     Indication: TYPE 2 DIABETES MELLITUS
     Dosage: 50 MILLIGRAM, QD
     Route: 048
     Dates: end: 20200111
  5. HEPARINOID [Concomitant]
     Active Substance: CHONDROITIN SULFATE (BOVINE)
     Dosage: DOSAGE IS UNKNOWN
     Route: 065
     Dates: end: 20200111
  6. ACTOS [Suspect]
     Active Substance: PIOGLITAZONE HYDROCHLORIDE
     Indication: TYPE 2 DIABETES MELLITUS
     Dosage: 15 MILLIGRAM, QD
     Route: 048
     Dates: end: 20200111
  7. CALONAL [Concomitant]
     Active Substance: ACETAMINOPHEN
     Dosage: DOSAGE IS UNKNOWN
     Route: 065
     Dates: end: 20200111
  8. GLIMICRON [Suspect]
     Active Substance: GLICLAZIDE
     Indication: TYPE 2 DIABETES MELLITUS
     Dosage: 40 MILLIGRAM, QD
     Route: 048
     Dates: end: 20200111
  9. MEVALOTIN [Concomitant]
     Active Substance: PRAVASTATIN SODIUM
     Dosage: DOSAGE IS UNKNOWN
     Route: 065
     Dates: end: 20200111
  10. CRAVIT [Concomitant]
     Active Substance: LEVOFLOXACIN
     Dosage: DOSAGE IS UNKNOWN
     Route: 065
     Dates: end: 20200111

REACTIONS (7)
  - Hypoglycaemia [Recovered/Resolved]
  - Influenza A virus test positive [Unknown]
  - Altered state of consciousness [Recovered/Resolved]
  - Pyrexia [Recovered/Resolved]
  - Oropharyngeal pain [Unknown]
  - Blood potassium decreased [Unknown]
  - Productive cough [Unknown]

NARRATIVE: CASE EVENT DATE: 20200108
